FAERS Safety Report 17868369 (Version 4)
Quarter: 2021Q2

REPORT INFORMATION
  Report Type: Report from Study
  Country: None (occurrence: US)
  Receive Date: 20200606
  Receipt Date: 20210609
  Transmission Date: 20210717
  Serious: Yes (Hospitalization, Other)
  Sender: FDA-Public Use
  Company Number: US-ABBVIE-20K-163-3430426-00

PATIENT
  Age: 70 Year
  Sex: Male
  Weight: 63.56 kg

DRUGS (2)
  1. FLOMAX [Suspect]
     Active Substance: TAMSULOSIN HYDROCHLORIDE
     Indication: PRODUCT USED FOR UNKNOWN INDICATION
     Route: 065
  2. HUMIRA [Suspect]
     Active Substance: ADALIMUMAB
     Indication: CROHN^S DISEASE
     Route: 058
     Dates: start: 201912

REACTIONS (7)
  - Blood pressure decreased [Unknown]
  - Dyspnoea exertional [Unknown]
  - Ejection fraction decreased [Unknown]
  - Fall [Unknown]
  - Loss of consciousness [Unknown]
  - Asthenia [Unknown]
  - Myocardial infarction [Recovering/Resolving]

NARRATIVE: CASE EVENT DATE: 20200519
